FAERS Safety Report 17456763 (Version 1)
Quarter: 2020Q1

REPORT INFORMATION
  Report Type: Report from Study
  Country: ES (occurrence: ES)
  Receive Date: 20200225
  Receipt Date: 20200225
  Transmission Date: 20200409
  Serious: Yes (Other)
  Sender: FDA-Public Use
  Company Number: ES-ACTELION-A-CH2019-187015

PATIENT
  Age: 71 Year
  Sex: Female
  Weight: 75 kg

DRUGS (16)
  1. ATORVASTATIN [Concomitant]
     Active Substance: ATORVASTATIN
     Indication: HYPERLIPIDAEMIA
     Dosage: UNK
     Route: 048
     Dates: start: 20090109
  2. ALPRAZOLAM. [Concomitant]
     Active Substance: ALPRAZOLAM
     Indication: ANXIETY
     Dosage: UNK, PRN
     Route: 048
     Dates: start: 20190109
  3. ACENOCUMAROL [Concomitant]
     Active Substance: ACENOCOUMAROL
     Indication: PROPHYLAXIS
     Dosage: UNK
     Route: 048
     Dates: start: 20090110
  4. ADEMPAS [Suspect]
     Active Substance: RIOCIGUAT
     Dosage: 4.5 MG, QD
     Route: 048
     Dates: start: 20190312, end: 20190506
  5. ADEMPAS [Suspect]
     Active Substance: RIOCIGUAT
     Dosage: 7.5 MG, QD
     Route: 048
     Dates: start: 20190910
  6. LEVOTHYROXINE SODIUM. [Concomitant]
     Active Substance: LEVOTHYROXINE SODIUM
     Indication: HYPOTHYROIDISM
     Dosage: UNK
     Route: 048
     Dates: start: 20180414
  7. ADEMPAS [Suspect]
     Active Substance: RIOCIGUAT
     Indication: PULMONARY ARTERIAL HYPERTENSION
     Dosage: 3 MG, QD
     Route: 048
     Dates: start: 20190225, end: 20190312
  8. DILTIAZEM. [Concomitant]
     Active Substance: DILTIAZEM
     Indication: PROPHYLAXIS
     Dosage: UNK
     Route: 048
     Dates: start: 20090109, end: 20191130
  9. OPSUMIT [Suspect]
     Active Substance: MACITENTAN
     Indication: PULMONARY ARTERIAL HYPERTENSION
     Dosage: 10 MG, QD
     Route: 048
     Dates: start: 20190204
  10. UPTRAVI [Suspect]
     Active Substance: SELEXIPAG
     Indication: PULMONARY ARTERIAL HYPERTENSION
     Dosage: 400 MCG, QD
     Route: 048
     Dates: start: 20190220, end: 20190222
  11. ADEMPAS [Suspect]
     Active Substance: RIOCIGUAT
     Dosage: 6 MG, QD
     Route: 048
     Dates: start: 20190506, end: 20190910
  12. PARACETAMOL [Concomitant]
     Active Substance: ACETAMINOPHEN
     Indication: PAIN
     Dosage: UNK
     Route: 048
     Dates: start: 20161111
  13. OMEPRAZOLE. [Concomitant]
     Active Substance: OMEPRAZOLE
     Indication: PROPHYLAXIS
     Dosage: UNK
     Route: 048
     Dates: start: 20090110
  14. BETAMETHASONE W/CALCIPOTRIOL [Concomitant]
     Active Substance: BETAMETHASONE DIPROPIONATE\CALCIPOTRIENE HYDRATE
     Indication: PSORIASIS
     Dosage: UNK
     Route: 061
     Dates: start: 20140523
  15. AMIODARONE [Concomitant]
     Active Substance: AMIODARONE
     Indication: PROPHYLAXIS
     Dosage: UNK
     Route: 048
     Dates: start: 20190104, end: 20191124
  16. DICLOFENAC [Concomitant]
     Active Substance: DICLOFENAC
     Indication: PAIN
     Dosage: UNK
     Route: 048
     Dates: start: 20090310

REACTIONS (7)
  - Malaise [Recovered/Resolved]
  - Headache [Recovered/Resolved]
  - Atrial flutter [Recovered/Resolved]
  - Cardioversion [Recovered/Resolved]
  - Palpitations [Recovered/Resolved]
  - Dyspnoea exertional [Recovered/Resolved]
  - Abdominal distension [Recovered/Resolved]

NARRATIVE: CASE EVENT DATE: 20190220
